FAERS Safety Report 17426480 (Version 2)
Quarter: 2020Q1

REPORT INFORMATION
  Report Type: Spontaneous
  Country: US (occurrence: US)
  Receive Date: 20200218
  Receipt Date: 20200220
  Transmission Date: 20200409
  Serious: Yes (Other)
  Sender: FDA-Public Use
  Company Number: US-ASTRAZENECA-2020SE22298

PATIENT
  Sex: Female

DRUGS (3)
  1. TAGRISSO [Suspect]
     Active Substance: OSIMERTINIB
     Route: 048
  2. TAGRISSO [Suspect]
     Active Substance: OSIMERTINIB
     Route: 048
  3. TAGRISSO [Suspect]
     Active Substance: OSIMERTINIB
     Route: 048

REACTIONS (9)
  - Dyspnoea [Unknown]
  - Metastases to central nervous system [Unknown]
  - Gastrooesophageal reflux disease [Unknown]
  - Malignant neoplasm progression [Unknown]
  - Cough [Unknown]
  - Chest discomfort [Unknown]
  - Bronchitis [Unknown]
  - Gastrooesophageal sphincter insufficiency [Unknown]
  - Fatigue [Unknown]
